FAERS Safety Report 5948963-7 (Version None)
Quarter: 2008Q4

REPORT INFORMATION
  Report Type: 
  Country: None (occurrence: None)
  Receive Date: 20081111
  Receipt Date: 20081106
  Transmission Date: 20090506
  Serious: Yes (Death, Other)
  Sender: FDA-Public Use
  Company Number: US-ABBOTT-08P-163-0485656-00

PATIENT
  Sex: Female
  Weight: 63.56 kg

DRUGS (12)
  1. HUMIRA [Suspect]
     Indication: RHEUMATOID ARTHRITIS
     Route: 058
     Dates: start: 20050101
  2. HUMIRA [Suspect]
     Dosage: THE LAST 7 INJECTIONS WERE WITH HUMIRA PEN
     Route: 058
     Dates: end: 20080801
  3. DIOVAN HCT [Concomitant]
     Indication: HYPERTENSION
     Route: 048
     Dates: start: 20040101, end: 20080801
  4. FUROSEMIDE [Concomitant]
     Indication: DIURETIC THERAPY
     Route: 048
     Dates: start: 20040101, end: 20080801
  5. OMEPRAZOLE MAGNESIUM [Concomitant]
     Indication: DUODENAL ULCER
     Route: 048
     Dates: start: 20070101, end: 20080801
  6. SERETIDE [Concomitant]
     Indication: ASTHMA
     Route: 055
  7. ALBUTEROL DUONEB [Concomitant]
     Indication: ASTHMA
     Route: 055
     Dates: start: 20040101, end: 20080801
  8. ALBUTEROL DUONEB [Concomitant]
     Indication: CHRONIC OBSTRUCTIVE PULMONARY DISEASE
  9. ASPIRIN [Concomitant]
     Indication: ANTICOAGULANT THERAPY
     Route: 048
     Dates: start: 20040101, end: 20080801
  10. ASPIRIN [Concomitant]
     Indication: PROPHYLAXIS
  11. MULTI-VITAMIN [Concomitant]
     Indication: VITAMIN SUPPLEMENTATION
     Route: 048
  12. CALCIUM [Concomitant]
     Indication: MINERAL SUPPLEMENTATION
     Dosage: 1000 MG DAILY
     Route: 048

REACTIONS (2)
  - CHRONIC OBSTRUCTIVE PULMONARY DISEASE [None]
  - COLON CANCER [None]
